FAERS Safety Report 4681585-7 (Version None)
Quarter: 2005Q2

REPORT INFORMATION
  Report Type: 
  Country: None (occurrence: None)
  Receive Date: 20050602
  Receipt Date: 20050521
  Transmission Date: 20051028
  Serious: Yes (Other)
  Sender: FDA-Public Use
  Company Number: 2004100388

PATIENT
  Age: 50 Year
  Sex: Female

DRUGS (2)
  1. NEURONTIN [Suspect]
     Indication: NEUROPATHIC PAIN
     Dosage: 900 MG (300 MG 3 IN 1 D)
     Dates: start: 20030301
  2. PREDNISONE TAB [Suspect]

REACTIONS (4)
  - ARTERIOVENOUS MALFORMATION [None]
  - ASEPTIC NECROSIS BONE [None]
  - CEREBROVASCULAR SPASM [None]
  - OSTEOPOROSIS [None]
